FAERS Safety Report 16541980 (Version 1)
Quarter: 2019Q3

REPORT INFORMATION
  Report Type: Spontaneous
  Country: SE (occurrence: SE)
  Receive Date: 20190708
  Receipt Date: 20190708
  Transmission Date: 20191004
  Serious: Yes (Hospitalization)
  Sender: FDA-Public Use
  Company Number: SE-MYLANLABS-2019M1063057

PATIENT
  Age: 23 Year
  Sex: Male

DRUGS (2)
  1. COCILLANA EXTRACT, ETHYLMORPHINE, POLYGALA SENEGA EXTRACT MYLAN [Suspect]
     Active Substance: COCILLANA\ETHYLMORPHINE\SENEGA EXTRACT
     Indication: PRODUCT USED FOR UNKNOWN INDICATION
     Dosage: 100 MILLILITER
     Route: 048
     Dates: start: 201809
  2. LERGIGAN [PROMETHAZINE HYDROCHLORIDE] [Suspect]
     Active Substance: PROMETHAZINE HYDROCHLORIDE
     Indication: PRODUCT USED FOR UNKNOWN INDICATION
     Dosage: 5 ST
     Dates: start: 201809

REACTIONS (2)
  - Intentional overdose [Unknown]
  - Suicide attempt [Unknown]

NARRATIVE: CASE EVENT DATE: 20180909
